FAERS Safety Report 10189451 (Version 1)
Quarter: 2014Q2

REPORT INFORMATION
  Report Type: Spontaneous
  Country: FR (occurrence: FR)
  Receive Date: 20140522
  Receipt Date: 20140522
  Transmission Date: 20141212
  Serious: Yes (Death, Life-Threatening, Other)
  Sender: FDA-Public Use
  Company Number: FR-TEVA-482378ISR

PATIENT
  Age: 68 Year
  Sex: Female

DRUGS (4)
  1. CARBOPLATINE TEVA [Suspect]
     Indication: LUNG NEOPLASM MALIGNANT
     Dosage: 328.5 MILLIGRAM DAILY;
     Route: 042
     Dates: start: 20140214, end: 20140214
  2. VISIPAQUE 320 [Suspect]
     Indication: LUNG NEOPLASM MALIGNANT
     Route: 042
     Dates: start: 20140212, end: 20140212
  3. ALIMTA [Concomitant]
     Indication: LUNG NEOPLASM MALIGNANT
     Dosage: 500 MG/M2 DAILY;
     Route: 042
     Dates: start: 20140214, end: 20140214
  4. AVASTIN [Concomitant]
     Dates: start: 20140214

REACTIONS (13)
  - Death [Fatal]
  - Renal failure acute [Recovered/Resolved with Sequelae]
  - Acute pulmonary oedema [Recovered/Resolved with Sequelae]
  - Anuria [Unknown]
  - Acute respiratory failure [Recovered/Resolved]
  - Respiratory distress [Unknown]
  - Renal tubular necrosis [Unknown]
  - Infection [Unknown]
  - Cardiac failure [Unknown]
  - Dyspepsia [Unknown]
  - Vomiting [Unknown]
  - Rash [Unknown]
  - Hyperkalaemia [Unknown]
